FAERS Safety Report 7430779-6 (Version None)
Quarter: 2011Q2

REPORT INFORMATION
  Report Type: 
  Country: None (occurrence: None)
  Receive Date: 20110419
  Receipt Date: 20110419
  Transmission Date: 20111010
  Serious: Yes (Death)
  Sender: FDA-Public Use
  Company Number: None

PATIENT
  Age: 68 Year
  Sex: Male

DRUGS (6)
  1. REVLIMID [Suspect]
     Indication: MULTIPLE MYELOMA
     Dosage: 10MG EVERY TUES/THURS ORALLY
     Route: 048
     Dates: start: 20081101, end: 20110101
  2. DIGOXIN [Concomitant]
  3. RENVELA [Concomitant]
  4. DEXAMETHASONE [Concomitant]
  5. WARFARIN [Concomitant]
  6. VICODIN [Concomitant]

REACTIONS (3)
  - FALL [None]
  - PELVIC FRACTURE [None]
  - SEPTIC SHOCK [None]
